FAERS Safety Report 5631769-6 (Version None)
Quarter: 2008Q1

REPORT INFORMATION
  Report Type: 
  Country: None (occurrence: None)
  Receive Date: 20080219
  Receipt Date: 20080219
  Transmission Date: 20080703
  Serious: Yes (Other)
  Sender: FDA-Public Use
  Company Number: None

PATIENT
  Age: 90 Year
  Sex: Female
  Weight: 49.8957 kg

DRUGS (1)
  1. WARFARIN SODIUM [Suspect]
     Indication: CONJUNCTIVAL HAEMORRHAGE
     Dosage: ONE PO Q DAY LIFETIME
     Route: 048

REACTIONS (3)
  - EYE HAEMORRHAGE [None]
  - PHARMACEUTICAL PRODUCT COMPLAINT [None]
  - THERAPEUTIC RESPONSE UNEXPECTED WITH DRUG SUBSTITUTION [None]
